FAERS Safety Report 19372764 (Version 1)
Quarter: 2021Q2

REPORT INFORMATION
  Report Type: Spontaneous
  Country: US (occurrence: US)
  Receive Date: 20210603
  Receipt Date: 20210603
  Transmission Date: 20210717
  Serious: No
  Sender: FDA-Public Use
  Company Number: None

PATIENT
  Age: 71 Year
  Sex: Male
  Weight: 81.7 kg

DRUGS (16)
  1. ASPIRIN 81 [Concomitant]
     Active Substance: ASPIRIN
  2. LANTUS SOLOSTAR [Concomitant]
     Active Substance: INSULIN GLARGINE
  3. LORAZEPAM. [Concomitant]
     Active Substance: LORAZEPAM
  4. ZOSYN [Concomitant]
     Active Substance: PIPERACILLIN SODIUM\TAZOBACTAM SODIUM
  5. CLOTRIMAZOLE AND BETAMETHASONE DIPROPIONATE [Concomitant]
     Active Substance: BETAMETHASONE\BETAMETHASONE DIPROPIONATE\CLOTRIMAZOLE
  6. ATORVASTATIN CALCIUM. [Concomitant]
     Active Substance: ATORVASTATIN CALCIUM
  7. MESALAMINE ER [Concomitant]
     Active Substance: MESALAMINE
  8. METAMUCIL [Concomitant]
     Active Substance: PLANTAGO SEED
  9. NOVOLOG [Concomitant]
     Active Substance: INSULIN ASPART
  10. VANCOMYCIN HCL IN DEXTROSE [Concomitant]
  11. VIREAD [Concomitant]
     Active Substance: TENOFOVIR DISOPROXIL FUMARATE
  12. CAPECITABINE. [Suspect]
     Active Substance: CAPECITABINE
     Indication: CHOLANGIOCARCINOMA
     Route: 048
     Dates: start: 20210419, end: 20210603
  13. MULTIVITAMIN ADULT [Concomitant]
  14. ONDANSETRON HCL [Concomitant]
     Active Substance: ONDANSETRON HYDROCHLORIDE
  15. CLONAZEPAM. [Concomitant]
     Active Substance: CLONAZEPAM
  16. AVAPRO [Concomitant]
     Active Substance: IRBESARTAN

REACTIONS (3)
  - Nausea [None]
  - Decreased appetite [None]
  - Therapeutic product effect decreased [None]

NARRATIVE: CASE EVENT DATE: 20210503
